FAERS Safety Report 4425533-3 (Version None)
Quarter: 2004Q3

REPORT INFORMATION
  Report Type: 
  Country: None (occurrence: None)
  Receive Date: 20040810
  Receipt Date: 20040730
  Transmission Date: 20050211
  Serious: Yes (Hospitalization)
  Sender: FDA-Public Use
  Company Number: 208168

PATIENT
  Age: 13 Year
  Sex: Male

DRUGS (1)
  1. NUTROPIN AQ [Suspect]
     Indication: GROWTH HORMONE DEFICIENCY
     Dosage: 2 MG, QD
     Dates: start: 20030101

REACTIONS (4)
  - BLOOD TESTOSTERONE DECREASED [None]
  - FIBULA FRACTURE [None]
  - INJURY [None]
  - TIBIA FRACTURE [None]
